FAERS Safety Report 23941017 (Version 1)
Quarter: 2024Q2

REPORT INFORMATION
  Report Type: Spontaneous
  Country: US (occurrence: None)
  Receive Date: 20240531
  Receipt Date: 20240531
  Transmission Date: 20240716
  Serious: Yes (Life-Threatening, Disabling, Other)
  Sender: FDA-Public Use
  Company Number: None

PATIENT
  Age: 42 Year
  Sex: Female
  Weight: 81 kg

DRUGS (3)
  1. KOJIC ACID [Suspect]
     Active Substance: KOJIC ACID
     Indication: Skin hyperpigmentation
     Dates: start: 20220101, end: 20240516
  2. PROMETHEGAN [Concomitant]
     Active Substance: PROMETHAZINE HYDROCHLORIDE
  3. ibupofen [Concomitant]

REACTIONS (2)
  - Illness [None]
  - Product formulation issue [None]

NARRATIVE: CASE EVENT DATE: 20240516
